FAERS Safety Report 5688905-5 (Version None)
Quarter: 2008Q1

REPORT INFORMATION
  Report Type: 
  Country: None (occurrence: None)
  Receive Date: 20080331
  Receipt Date: 20080321
  Transmission Date: 20080703
  Serious: Yes (Hospitalization)
  Sender: FDA-Public Use
  Company Number: GB-BAYER-200610067BNE

PATIENT
  Age: 70 Year
  Sex: Female
  Weight: 67 kg

DRUGS (29)
  1. SORAFENIB [Suspect]
     Dosage: AS USED: 400 MG
     Route: 048
     Dates: start: 20051125, end: 20051212
  2. SORAFENIB [Suspect]
     Route: 048
     Dates: start: 20060106, end: 20060131
  3. CARBOPLATIN [Suspect]
     Route: 042
     Dates: start: 20060105
  4. CARBOPLATIN [Suspect]
     Route: 042
     Dates: start: 20051124, end: 20051124
  5. PACLITAXEL [Suspect]
     Route: 042
     Dates: start: 20060105
  6. PACLITAXEL [Suspect]
     Route: 042
     Dates: start: 20051124, end: 20051124
  7. CYCLIZINE [Concomitant]
     Indication: NAUSEA
     Route: 048
     Dates: start: 20051107
  8. CYCLIZINE [Concomitant]
     Dates: start: 20051130
  9. DOMPERIDONE [Concomitant]
     Indication: NAUSEA
     Route: 048
     Dates: start: 20051107
  10. DOMPERIDONE [Concomitant]
     Dates: start: 20051124
  11. DICLOFENAC [Concomitant]
     Indication: PAIN
     Route: 048
     Dates: start: 20051107
  12. DICLOFENAC [Concomitant]
     Dates: start: 20050712
  13. LANSOPRAZOLE [Concomitant]
     Indication: DYSPEPSIA
     Route: 048
     Dates: start: 20050712
  14. LANSOPRAZOLE [Concomitant]
     Route: 048
     Dates: start: 20051107
  15. MST [Concomitant]
     Indication: PAIN
     Route: 048
     Dates: start: 20051206
  16. MST [Concomitant]
     Dates: start: 20060112
  17. CO-DANTHRAMER [Concomitant]
     Indication: CONSTIPATION
     Dates: start: 20060117
  18. CO-DANTHRAMER [Concomitant]
     Dates: start: 20051206, end: 20051218
  19. TRAMADOL HCL [Concomitant]
     Indication: PAIN
     Dates: start: 20050712, end: 20051206
  20. OROMORPH [Concomitant]
     Indication: PAIN
     Dates: start: 20051127
  21. LOPERAMIDE HCL [Concomitant]
     Indication: DIARRHOEA
     Dates: start: 20051130, end: 20051203
  22. SODIUM DOCUSATE [Concomitant]
     Indication: CONSTIPATION
     Dates: start: 20060117
  23. SODIUM DOCUSATE [Concomitant]
     Dates: start: 20051206, end: 20051218
  24. LEVOFLOXACIN [Concomitant]
     Indication: INFECTION
     Dates: start: 20051213, end: 20051220
  25. NYSTATIN [Concomitant]
     Indication: STOMATITIS
     Dates: start: 20060107
  26. SALBUTAMOL [Concomitant]
     Indication: CHEST DISCOMFORT
     Dates: start: 20051214
  27. LACTULOSE [Concomitant]
     Indication: CONSTIPATION PROPHYLAXIS
     Dates: start: 20051215
  28. HYDROLAX [Concomitant]
     Indication: CONSTIPATION PROPHYLAXIS
     Dates: start: 20051219
  29. BLOOD TRANSFUSION [Concomitant]
     Indication: ANAEMIA
     Dates: start: 20051210, end: 20051210

REACTIONS (2)
  - LOWER RESPIRATORY TRACT INFECTION [None]
  - NEUTROPENIC SEPSIS [None]
